FAERS Safety Report 13275882 (Version 1)
Quarter: 2017Q1

REPORT INFORMATION
  Report Type: Spontaneous
  Country: GB (occurrence: GB)
  Receive Date: 20170228
  Receipt Date: 20170228
  Transmission Date: 20170428
  Serious: Yes (Other)
  Sender: FDA-Public Use
  Company Number: GB-SUN PHARMACEUTICAL INDUSTRIES LTD-2016RR-131385

PATIENT
  Age: 77 Year
  Sex: Female

DRUGS (3)
  1. CLARITHROMYCIN. [Suspect]
     Active Substance: CLARITHROMYCIN
     Indication: LOWER RESPIRATORY TRACT INFECTION
     Dosage: 500 MG, BID
     Route: 048
  2. PREDNISOLONE. [Concomitant]
     Active Substance: PREDNISOLONE
     Indication: LOWER RESPIRATORY TRACT INFECTION
     Dosage: 30 MG, QD
     Route: 065
  3. CARBOCISTEINE [Concomitant]
     Active Substance: CARBOCYSTEINE
     Indication: LOWER RESPIRATORY TRACT INFECTION
     Dosage: 375 MG, TID
     Route: 065

REACTIONS (5)
  - Hallucination, visual [Recovered/Resolved]
  - Fall [Recovered/Resolved]
  - Akathisia [Recovered/Resolved]
  - Mobility decreased [Recovered/Resolved]
  - Insomnia [Recovered/Resolved]
